FAERS Safety Report 9317836 (Version 1)
Quarter: 2013Q2

REPORT INFORMATION
  Report Type: Spontaneous
  Country: CA (occurrence: None)
  Receive Date: 20130524
  Receipt Date: 20130524
  Transmission Date: 20140414
  Serious: No
  Sender: FDA-Public Use
  Company Number: 1717443

PATIENT
  Sex: 0

DRUGS (4)
  1. PRECEDEX (DEXMEDETOMIDINE HYDROCHLORIDE) INJECTION (DEXMEDETOMIDINE HYDROCHLORIDE) [Suspect]
     Indication: WEAN FROM VENTILATOR
  2. PRECEDEX (DEXMEDETOMIDINE HYDROCHLORIDE) INJECTION (DEXMEDETOMIDINE HYDROCHLORIDE) [Suspect]
     Indication: EXTUBATION
  3. PROPOFOL [Concomitant]
  4. ANALGESICS [Concomitant]

REACTIONS (4)
  - Presyncope [None]
  - Bradycardia [None]
  - Hypotension [None]
  - Ill-defined disorder [None]
